FAERS Safety Report 21245154 (Version 8)
Quarter: 2023Q2

REPORT INFORMATION
  Report Type: Report from Study
  Country: US (occurrence: US)
  Receive Date: 20220823
  Receipt Date: 20230516
  Transmission Date: 20230722
  Serious: Yes (Other)
  Sender: FDA-Public Use
  Company Number: US-002147023-NVSC2022US187963

PATIENT
  Age: 78 Year
  Sex: Female

DRUGS (3)
  1. LEQVIO [Suspect]
     Active Substance: INCLISIRAN SODIUM
     Indication: Product used for unknown indication
     Dosage: UNK
     Route: 058
     Dates: start: 20220812
  2. LEQVIO [Suspect]
     Active Substance: INCLISIRAN SODIUM
     Dosage: UNK
     Route: 058
     Dates: start: 20221202
  3. CORTISONE [Concomitant]
     Active Substance: CORTISONE
     Indication: Product used for unknown indication
     Dosage: UNK
     Route: 065

REACTIONS (18)
  - Hypertension [Recovered/Resolved]
  - Escherichia urinary tract infection [Recovering/Resolving]
  - Headache [Not Recovered/Not Resolved]
  - Arthralgia [Not Recovered/Not Resolved]
  - Haematochezia [Unknown]
  - Urethral prolapse [Unknown]
  - COVID-19 [Recovering/Resolving]
  - Cystitis noninfective [Recovering/Resolving]
  - Ill-defined disorder [Recovering/Resolving]
  - Asthenia [Recovering/Resolving]
  - Feeding disorder [Recovering/Resolving]
  - Gastrointestinal disorder [Recovering/Resolving]
  - Pollakiuria [Recovering/Resolving]
  - Middle insomnia [Recovering/Resolving]
  - Blood urine present [Recovering/Resolving]
  - Dry eye [Unknown]
  - Headache [Recovered/Resolved]
  - Meniscus injury [Recovering/Resolving]

NARRATIVE: CASE EVENT DATE: 20220801
